FAERS Safety Report 13256922 (Version 5)
Quarter: 2018Q1

REPORT INFORMATION
  Report Type: Report from Study
  Country: CZ (occurrence: CZ)
  Receive Date: 20170221
  Receipt Date: 20180214
  Transmission Date: 20180508
  Serious: Yes (Other)
  Sender: FDA-Public Use
  Company Number: CZ-CELGENEUS-CZE-2017022697

PATIENT
  Age: 66 Year
  Sex: Female

DRUGS (3)
  1. DEXAMETHASONE. [Concomitant]
     Active Substance: DEXAMETHASONE
     Indication: PLASMA CELL MYELOMA
     Route: 065
     Dates: start: 20150805, end: 20160330
  2. IMNOVID [Suspect]
     Active Substance: POMALIDOMIDE
     Indication: PLASMA CELL MYELOMA
     Route: 048
     Dates: start: 20150805, end: 20170518
  3. DEXAMETHASONE. [Concomitant]
     Active Substance: DEXAMETHASONE
     Route: 065
     Dates: end: 20170518

REACTIONS (7)
  - Back pain [Unknown]
  - Oedema peripheral [Unknown]
  - Infection [Unknown]
  - Cushingoid [Unknown]
  - Hypotension [Unknown]
  - Toothache [Unknown]
  - Pathological fracture [Unknown]
